FAERS Safety Report 6553682-2 (Version None)
Quarter: 2010Q1

REPORT INFORMATION
  Report Type: 
  Country: None (occurrence: None)
  Receive Date: 20100127
  Receipt Date: 20100119
  Transmission Date: 20100710
  Serious: Yes (Other)
  Sender: FDA-Public Use
  Company Number: PHHY2010FR00535

PATIENT
  Sex: Female
  Weight: 85 kg

DRUGS (5)
  1. XOLAIR [Suspect]
     Indication: ASTHMA
     Dosage: ONE INJECTION
     Dates: start: 20091230
  2. RASILEZ [Suspect]
     Indication: HYPERTENSION
     Dosage: 1 DF/DAY
     Dates: start: 20091201
  3. SINGULAIR [Concomitant]
     Indication: ASTHMA
     Dosage: 10 MG, QD
     Dates: start: 20000201
  4. VASTAREL [Concomitant]
     Indication: VERTIGO
     Dosage: 10 MG, QD
     Dates: start: 20080101
  5. INEGY [Concomitant]
     Indication: HYPERCHOLESTEROLAEMIA
     Dosage: 10/20 MG, QD
     Dates: start: 20080101

REACTIONS (5)
  - ANGIOEDEMA [None]
  - EYELID OEDEMA [None]
  - FACE OEDEMA [None]
  - LOCALISED OEDEMA [None]
  - OEDEMA PERIPHERAL [None]
